FAERS Safety Report 5144579-3 (Version None)
Quarter: 2006Q4

REPORT INFORMATION
  Report Type: 
  Country: None (occurrence: None)
  Receive Date: 20061031
  Receipt Date: 20061020
  Transmission Date: 20070319
  Serious: Yes (Other)
  Sender: FDA-Public Use
  Company Number: 2006106041

PATIENT
  Age: 62 Year
  Sex: Male
  Weight: 90 kg

DRUGS (6)
  1. VIAGRA [Suspect]
     Indication: ERECTILE DYSFUNCTION
     Dosage: 50 MG (50 MG, 1 IN 2 WK), ORAL
     Route: 048
     Dates: start: 20040101, end: 20060601
  2. DIURETICS             (DIURETICS) [Concomitant]
  3. ANTIHYPERTENSIVES                   (ANTIHYPERTENSIVES) [Concomitant]
  4. MULTIVITAMIN [Concomitant]
  5. NORVASC [Concomitant]
  6. HYDRAZIDE                   (HYDROCHLOROTHIAZIDE) [Concomitant]

REACTIONS (6)
  - BLINDNESS TRANSIENT [None]
  - CATARACT [None]
  - ERYTHEMA [None]
  - PROSTATECTOMY [None]
  - SWELLING FACE [None]
  - VISUAL ACUITY REDUCED [None]
